FAERS Safety Report 12886376 (Version 1)
Quarter: 2016Q4

REPORT INFORMATION
  Report Type: Spontaneous
  Country: US (occurrence: US)
  Receive Date: 20161026
  Receipt Date: 20161026
  Transmission Date: 20170207
  Serious: No
  Sender: FDA-Public Use
  Company Number: US-ENDO PHARMACEUTICALS INC.-2016-000313

PATIENT
  Age: 84 Year
  Sex: Male
  Weight: 53.57 kg

DRUGS (2)
  1. VALSTAR [Suspect]
     Active Substance: VALRUBICIN
     Indication: BLADDER CANCER
     Route: 043
     Dates: start: 20160118, end: 20160218
  2. CILOSTAZOL. [Concomitant]
     Active Substance: CILOSTAZOL
     Indication: POOR PERIPHERAL CIRCULATION

REACTIONS (5)
  - Device leakage [Recovered/Resolved]
  - Exposure to toxic agent [Unknown]
  - Underdose [Recovered/Resolved]
  - Wrong technique in product usage process [Recovered/Resolved]
  - Incorrect drug administration duration [Unknown]

NARRATIVE: CASE EVENT DATE: 20160104
